FAERS Safety Report 18495437 (Version 1)
Quarter: 2020Q4

REPORT INFORMATION
  Report Type: Other
  Country: DE (occurrence: DE)
  Receive Date: 20201112
  Receipt Date: 20201112
  Transmission Date: 20210114
  Serious: Yes (Other)
  Sender: FDA-Public Use
  Company Number: DE-ROCHE-2711229

PATIENT
  Age: 26 Year
  Sex: Male

DRUGS (4)
  1. BEVACIZUMAB. [Suspect]
     Active Substance: BEVACIZUMAB
     Indication: ANAPLASTIC ASTROCYTOMA
     Route: 065
  2. DEXAMETHASONE. [Concomitant]
     Active Substance: DEXAMETHASONE
     Dosage: 4-16 MG/DAILY
  3. TEMOZOLOMIDE. [Concomitant]
     Active Substance: TEMOZOLOMIDE
  4. HYDROXYUREA. [Suspect]
     Active Substance: HYDROXYUREA
     Indication: ANAPLASTIC ASTROCYTOMA
     Route: 048

REACTIONS (2)
  - Skin necrosis [Unknown]
  - Ulcer [Unknown]
